FAERS Safety Report 6059824-X (Version None)
Quarter: 2009Q1

REPORT INFORMATION
  Report Type: 
  Country: None (occurrence: None)
  Receive Date: 20090130
  Receipt Date: 20081104
  Transmission Date: 20090719
  Serious: No
  Sender: FDA-Public Use
  Company Number: US-ABBOTT-08P-163-0479418-00

PATIENT
  Sex: Male
  Weight: 64.468 kg

DRUGS (8)
  1. LUPRON DEPOT [Suspect]
     Indication: PROSTATE CANCER
     Route: 030
     Dates: start: 20040301, end: 20040601
  2. LUPRON DEPOT [Suspect]
     Indication: PROSTATIC SPECIFIC ANTIGEN INCREASED
     Route: 030
     Dates: start: 20050501, end: 20051201
  3. LUPRON DEPOT [Suspect]
     Route: 030
     Dates: start: 20060101, end: 20061101
  4. LUPRON DEPOT [Suspect]
     Route: 030
     Dates: start: 20080101, end: 20080301
  5. ATORVASTATIN CALCIUM [Concomitant]
     Indication: BLOOD CHOLESTEROL
     Route: 048
  6. METOPROLOL [Concomitant]
     Indication: HYPERTENSION
     Route: 048
  7. CYANOCOBALAMIN-TANNIN COMPLEX [Concomitant]
     Indication: NEUROPATHY PERIPHERAL
     Route: 050
     Dates: start: 20080929
  8. ACETYLSALICYLIC ACID SRT [Concomitant]
     Indication: DRUG USE FOR UNKNOWN INDICATION
     Route: 048

REACTIONS (5)
  - HOT FLUSH [None]
  - HYPOAESTHESIA [None]
  - MALAISE [None]
  - NEUROPATHY PERIPHERAL [None]
  - PARAESTHESIA [None]
